FAERS Safety Report 10736044 (Version 1)
Quarter: 2015Q1

REPORT INFORMATION
  Report Type: Spontaneous
  Country: RS (occurrence: None)
  Receive Date: 20150121
  Receipt Date: 20150121
  Transmission Date: 20150721
  Serious: Yes (Other)
  Sender: FDA-Public Use
  Company Number: COR_00225_2015

PATIENT
  Age: 2 Month
  Sex: Male

DRUGS (4)
  1. CYCLOSPORINE. [Suspect]
     Active Substance: CYCLOSPORINE
     Indication: HISTIOCYTOSIS HAEMATOPHAGIC
     Dosage: DF
     Dates: start: 2009, end: 201007
  2. ANTIBIOTICS [Concomitant]
     Active Substance: UNSPECIFIED INGREDIENT
  3. DEXAMETHASONE (DEXAMETHASONE) [Suspect]
     Active Substance: DEXAMETHASONE
     Indication: HISTIOCYTOSIS HAEMATOPHAGIC
     Dosage: DF
     Dates: start: 2009, end: 201007
  4. ETOPOSIDE (ETOPOSIDE) [Suspect]
     Active Substance: ETOPOSIDE
     Indication: HISTIOCYTOSIS HAEMATOPHAGIC
     Dosage: 4 DOSES GIVEN TWICE A WEEK , 150 MG/M2 [ 1 DOSE ADMINISTERED], 150 MG/M2, 4 DOSES GIVEN ONCE WEEKLY, 150 MG/M2, 4 DOSES GIVEN ONCE EVERY TWO WEEKS
     Dates: start: 2009, end: 200911

REACTIONS (4)
  - Sepsis [None]
  - Left ventricular hypertrophy [None]
  - Diarrhoea [None]
  - Febrile neutropenia [None]
